FAERS Safety Report 16223404 (Version 3)
Quarter: 2019Q3

REPORT INFORMATION
  Report Type: Spontaneous
  Country: FR (occurrence: FR)
  Receive Date: 20190422
  Receipt Date: 20190711
  Transmission Date: 20191004
  Serious: Yes (Other)
  Sender: FDA-Public Use
  Company Number: FR-PFIZER INC-2019170330

PATIENT
  Age: 51 Year
  Sex: Female
  Weight: 60 kg

DRUGS (3)
  1. SALAZOPYRINE [Suspect]
     Active Substance: SULFASALAZINE
     Indication: COLITIS ULCERATIVE
     Dosage: 2 DF, 3X/DAY (2 IN MORNING, 2 AT NOON AND 2 IN THE EVENING)
     Route: 048
     Dates: start: 20190404, end: 20190414
  2. SALAZOPYRINE [Interacting]
     Active Substance: SULFASALAZINE
     Indication: METATARSALGIA
  3. FIVASA [MESALAZINE] [Interacting]
     Active Substance: MESALAMINE
     Dosage: 800 MG, 2X/DAY

REACTIONS (4)
  - Drug interaction [Unknown]
  - Acne [Recovered/Resolved]
  - Rash pustular [Recovered/Resolved]
  - Toxic skin eruption [Recovered/Resolved]

NARRATIVE: CASE EVENT DATE: 20190413
